FAERS Safety Report 7538753-6 (Version None)
Quarter: 2011Q2

REPORT INFORMATION
  Report Type: 
  Country: None (occurrence: None)
  Receive Date: 20110610
  Receipt Date: 20110607
  Transmission Date: 20111010
  Serious: No
  Sender: FDA-Public Use
  Company Number: US-PFIZER INC-2011124969

PATIENT
  Sex: Female

DRUGS (4)
  1. LYRICA [Suspect]
     Indication: NEUROPATHY PERIPHERAL
     Dosage: 600 MG, PER DAY
  2. PRIMIDONE [Suspect]
     Dosage: UNK
  3. NORTRIPTYLINE HCL [Suspect]
     Dosage: UNK
  4. IMIPRAMINE [Suspect]
     Dosage: UNK

REACTIONS (2)
  - DRUG INEFFECTIVE [None]
  - TREMOR [None]
